FAERS Safety Report 8078165-2 (Version None)
Quarter: 2012Q1

REPORT INFORMATION
  Report Type: 
  Country: None (occurrence: None)
  Receive Date: 20120127
  Receipt Date: 20110707
  Transmission Date: 20120608
  Serious: No
  Sender: FDA-Public Use
  Company Number: US-BAUSCH-2011BL004568

PATIENT

DRUGS (1)
  1. ZYLET [Suspect]
     Indication: EYE COMPLICATION ASSOCIATED WITH DEVICE
     Route: 047

REACTIONS (1)
  - PUNCTATE KERATITIS [None]
